FAERS Safety Report 5381815-2 (Version None)
Quarter: 2007Q3

REPORT INFORMATION
  Report Type: 
  Country: None (occurrence: None)
  Receive Date: 20070705
  Receipt Date: 20070620
  Transmission Date: 20080115
  Serious: Yes (Hospitalization)
  Sender: FDA-Public Use
  Company Number: 2007000646

PATIENT
  Age: 74 Year
  Sex: Male
  Weight: 60.3 kg

DRUGS (5)
  1. ERLOTINIB (TABLET) [Suspect]
     Indication: NON-SMALL CELL LUNG CANCER
     Dosage: 150 MG QD, ORAL
     Route: 048
     Dates: start: 20070302
  2. BEVACIZUMAB OR PLACEBO (INJECTION FOR INFUSION) [Suspect]
     Indication: NON-SMALL CELL LUNG CANCER
     Dosage: 900 MG Q3W, INTRAVENOUS
     Route: 042
     Dates: start: 20070320
  3. BEVACIZUMAB OR PLACEBO (INJECTION FOR INFUSION) [Suspect]
  4. OMEPRAZOLE [Concomitant]
  5. DIGOXIN [Concomitant]

REACTIONS (1)
  - PANCREATITIS ACUTE [None]
